FAERS Safety Report 7269737-3 (Version None)
Quarter: 2011Q1

REPORT INFORMATION
  Report Type: 
  Country: None (occurrence: None)
  Receive Date: 20110124
  Receipt Date: 20110111
  Transmission Date: 20110831
  Serious: Yes (Hospitalization)
  Sender: FDA-Public Use
  Company Number: 2009EU003448

PATIENT
  Age: 55 Year
  Sex: Female

DRUGS (15)
  1. RANITIDINE [Concomitant]
  2. TACROLIMUS [Suspect]
     Indication: RENAL TRANSPLANT
     Dosage: 2 MG, BID, ORAL ; 1 MG, BID ,ORAL
     Route: 048
     Dates: start: 20090714
  3. TACROLIMUS [Suspect]
     Indication: RENAL TRANSPLANT
     Dosage: 2 MG, BID, ORAL ; 1 MG, BID ,ORAL
     Route: 048
     Dates: start: 20061001, end: 20090703
  4. PREDNISOLONE [Concomitant]
  5. ALFACALCIDOL (ALFACALCIDOL) [Concomitant]
  6. CLOPIDOGREL [Concomitant]
  7. FUROSEMIDE [Concomitant]
  8. PERINDOPRIL ERBUMINE [Concomitant]
  9. SODIUM BICARBONATE IN PLASTIC CONTAINER [Concomitant]
  10. MIMPARA (CINACALCET) [Suspect]
     Indication: CALCIPHYLAXIS
     Dosage: 30 MG, UID/QD, ORAL
     Route: 048
     Dates: start: 20090602, end: 20090703
  11. ARANESP [Concomitant]
  12. FERROUS SULFATE TAB [Concomitant]
  13. OMEPRAZOLE [Concomitant]
  14. FRAGMIN [Concomitant]
  15. ACETAMINOPHEN [Concomitant]

REACTIONS (21)
  - TREMOR [None]
  - RENAL IMPAIRMENT [None]
  - SCLEROSING ENCAPSULATING PERITONITIS [None]
  - HAEMOGLOBIN DECREASED [None]
  - HYPOPHAGIA [None]
  - HEPATIC CYST [None]
  - WHITE BLOOD CELL COUNT INCREASED [None]
  - PLEURAL EFFUSION [None]
  - DEEP VEIN THROMBOSIS [None]
  - JAUNDICE CHOLESTATIC [None]
  - ASCITES [None]
  - ASTHENIA [None]
  - BLOOD POTASSIUM INCREASED [None]
  - INTERNATIONAL NORMALISED RATIO INCREASED [None]
  - MENORRHAGIA [None]
  - PLATELET COUNT INCREASED [None]
  - ABDOMINAL HERNIA [None]
  - CYTOMEGALOVIRUS INFECTION [None]
  - DRUG LEVEL INCREASED [None]
  - HAEMORRHAGE [None]
  - HAEMATOCRIT DECREASED [None]
